FAERS Safety Report 23966299 (Version 1)
Quarter: 2024Q2

REPORT INFORMATION
  Report Type: Spontaneous
  Country: US (occurrence: US)
  Receive Date: 20240612
  Receipt Date: 20240612
  Transmission Date: 20240716
  Serious: Yes (Other)
  Sender: FDA-Public Use
  Company Number: US-SA-SAC20240611000133

PATIENT
  Age: 79 Year
  Sex: Male

DRUGS (5)
  1. FLOMAX [Suspect]
     Active Substance: TAMSULOSIN HYDROCHLORIDE
     Indication: Product used for unknown indication
     Dosage: UNK
     Route: 065
  2. ORGOVYX [Suspect]
     Active Substance: RELUGOLIX
     Indication: Prostate cancer
     Dosage: 360 MG (ONE TIME DOSE)
     Route: 048
     Dates: start: 20240214, end: 20240214
  3. ORGOVYX [Suspect]
     Active Substance: RELUGOLIX
     Dosage: 120 MG, QD
     Route: 048
     Dates: start: 20240215
  4. ORGOVYX [Suspect]
     Active Substance: RELUGOLIX
     Dosage: UNK
     Route: 065
  5. ORGOVYX [Suspect]
     Active Substance: RELUGOLIX
     Dosage: UNK
     Route: 065

REACTIONS (7)
  - Glycosylated haemoglobin increased [Unknown]
  - Type 2 diabetes mellitus [Unknown]
  - Blood glucose increased [Unknown]
  - Urinary incontinence [Unknown]
  - Cognitive disorder [Unknown]
  - Urinary retention [Unknown]
  - Urinary cystectomy [Unknown]
